FAERS Safety Report 10253232 (Version 1)
Quarter: 2014Q2

REPORT INFORMATION
  Report Type: Spontaneous
  Country: US (occurrence: None)
  Receive Date: 20140619
  Receipt Date: 20140619
  Transmission Date: 20141212
  Serious: Yes (Disabling, Other)
  Sender: FDA-Public Use
  Company Number: None

PATIENT
  Age: 84 Year
  Sex: Male
  Weight: 70.31 kg

DRUGS (1)
  1. PSIZER TOVIAZ [Suspect]
     Indication: INCONTINENCE
     Dosage: 8 MIL  1 DAILY?9-24-13 TO APPROX 10-9
     Dates: start: 20130924

REACTIONS (4)
  - Incontinence [None]
  - Micturition urgency [None]
  - Pollakiuria [None]
  - Muscular weakness [None]
